FAERS Safety Report 14167769 (Version 1)
Quarter: 2017Q4

REPORT INFORMATION
  Report Type: Spontaneous
  Country: GB (occurrence: GB)
  Receive Date: 20171108
  Receipt Date: 20171108
  Transmission Date: 20180321
  Serious: Yes (Hospitalization)
  Sender: FDA-Public Use
  Company Number: GB-ASTRAZENECA-2017SF11684

PATIENT
  Age: 69 Year
  Sex: Male

DRUGS (14)
  1. COTRIMOXAZOLE [Suspect]
     Active Substance: SULFAMETHOXAZOLE\TRIMETHOPRIM
     Indication: CELLULITIS
     Dosage: 80/400MG, EVERY 12 HOURS
     Route: 065
     Dates: end: 20170925
  2. CYCLIZINE HYDROCHLORIDE [Concomitant]
     Active Substance: CYCLIZINE HYDROCHLORIDE
  3. HYOSCINE BUTYLBROMIDE [Concomitant]
     Active Substance: BUTYLSCOPOLAMINE
  4. RANITIDINE. [Concomitant]
     Active Substance: RANITIDINE
  5. TAMSULOSIN [Concomitant]
     Active Substance: TAMSULOSIN
  6. FELODIPINE. [Concomitant]
     Active Substance: FELODIPINE
  7. DOXAZOSIN [Concomitant]
     Active Substance: DOXAZOSIN\DOXAZOSIN MESYLATE
  8. NAPROXEN. [Concomitant]
     Active Substance: NAPROXEN
  9. PREGABALIN. [Concomitant]
     Active Substance: PREGABALIN
  10. DARBEPOETIN ALFA [Concomitant]
     Active Substance: DARBEPOETIN ALFA
  11. MACROGOL [Concomitant]
     Active Substance: POLYETHYLENE GLYCOLS
  12. TRAMADOL HYDROCHLORIDE. [Concomitant]
     Active Substance: TRAMADOL HYDROCHLORIDE
  13. CANDESARTAN CILEXETIL. [Suspect]
     Active Substance: CANDESARTAN CILEXETIL
     Indication: HYPERTENSION
     Route: 048
     Dates: end: 20170925
  14. PARACETAMOL [Concomitant]
     Active Substance: ACETAMINOPHEN

REACTIONS (2)
  - Acute kidney injury [Unknown]
  - Hyperkalaemia [Unknown]

NARRATIVE: CASE EVENT DATE: 20170923
